FAERS Safety Report 8196769-3 (Version None)
Quarter: 2012Q1

REPORT INFORMATION
  Report Type: 
  Country: None (occurrence: None)
  Receive Date: 20120309
  Receipt Date: 20120228
  Transmission Date: 20120608
  Serious: Yes (Hospitalization)
  Sender: FDA-Public Use
  Company Number: PHHY2012JP018995

PATIENT
  Sex: Male

DRUGS (3)
  1. CARVEDILOL [Concomitant]
  2. SLOW-K [Suspect]
     Route: 048
  3. DIGOXIN [Concomitant]

REACTIONS (3)
  - DYSPHAGIA [None]
  - FOREIGN BODY [None]
  - OESOPHAGEAL ULCER [None]
